FAERS Safety Report 22182847 (Version 2)
Quarter: 2023Q2

REPORT INFORMATION
  Report Type: Spontaneous
  Country: US (occurrence: US)
  Receive Date: 20230406
  Receipt Date: 20230425
  Transmission Date: 20230722
  Serious: No
  Sender: FDA-Public Use
  Company Number: US-ALLERGAN-2215600US

PATIENT
  Age: 63 Year
  Sex: Female

DRUGS (1)
  1. QULIPTA [Suspect]
     Active Substance: ATOGEPANT
     Indication: Product used for unknown indication
     Dosage: UNK
     Dates: start: 20220406

REACTIONS (13)
  - Adverse event [Unknown]
  - Hypoaesthesia [Unknown]
  - Feeling abnormal [Unknown]
  - Cardiac disorder [Unknown]
  - Multiple fractures [Recovering/Resolving]
  - Fall [Recovered/Resolved]
  - Hypokinesia [Unknown]
  - Asthenia [Unknown]
  - Dizziness [Unknown]
  - Clavicle fracture [Unknown]
  - Lower limb fracture [Unknown]
  - Patella fracture [Unknown]
  - Drug ineffective [Unknown]

NARRATIVE: CASE EVENT DATE: 20221101
